FAERS Safety Report 11878581 (Version 1)
Quarter: 2015Q4

REPORT INFORMATION
  Report Type: Spontaneous
  Country: US (occurrence: None)
  Receive Date: 20151229
  Receipt Date: 20151229
  Transmission Date: 20160305
  Serious: Yes (Hospitalization)
  Sender: FDA-Public Use
  Company Number: None

PATIENT
  Age: 73 Year
  Sex: Male
  Weight: 106.4 kg

DRUGS (1)
  1. APIXABAN [Suspect]
     Active Substance: APIXABAN
     Indication: ATRIAL FIBRILLATION
     Route: 048
     Dates: start: 20150714, end: 20150828

REACTIONS (5)
  - Anaemia [None]
  - Chronic gastritis [None]
  - Gastrointestinal haemorrhage [None]
  - Gastritis erosive [None]
  - Arteriovenous malformation [None]

NARRATIVE: CASE EVENT DATE: 20150828
